FAERS Safety Report 10307406 (Version 1)
Quarter: 2014Q3

REPORT INFORMATION
  Report Type: Spontaneous
  Country: US (occurrence: None)
  Receive Date: 20140714
  Receipt Date: 20140714
  Transmission Date: 20150326
  Serious: Yes (Other)
  Sender: FDA-Public Use
  Company Number: None

PATIENT
  Age: 74 Year
  Sex: Male
  Weight: 104.33 kg

DRUGS (1)
  1. FINASTERIDE. [Suspect]
     Active Substance: FINASTERIDE
     Indication: PROSTATOMEGALY
     Route: 048
     Dates: start: 20140620, end: 20140711

REACTIONS (8)
  - Blood urine present [None]
  - Cystitis [None]
  - Abdominal pain lower [None]
  - Muscular weakness [None]
  - Dysstasia [None]
  - Gait disturbance [None]
  - Rhinorrhoea [None]
  - Throat tightness [None]

NARRATIVE: CASE EVENT DATE: 20140711
